FAERS Safety Report 22635251 (Version 1)
Quarter: 2023Q2

REPORT INFORMATION
  Report Type: Report from Study
  Country: FI (occurrence: FI)
  Receive Date: 20230623
  Receipt Date: 20230623
  Transmission Date: 20230721
  Serious: Yes (Death)
  Sender: FDA-Public Use
  Company Number: FI-AMGEN-FINNI2023108750

PATIENT
  Age: 68 Year
  Sex: Female

DRUGS (2)
  1. SOTORASIB [Suspect]
     Active Substance: SOTORASIB
     Indication: Non-small cell lung cancer
     Dosage: 960 MILLIGRAM, QD
     Route: 065
     Dates: start: 20210707
  2. SOTORASIB [Suspect]
     Active Substance: SOTORASIB
     Dosage: 480 MILLIGRAM, QD
     Route: 065
     Dates: start: 20210811

REACTIONS (2)
  - Non-small cell lung cancer [Fatal]
  - Myalgia [Unknown]

NARRATIVE: CASE EVENT DATE: 20220216
